FAERS Safety Report 10777522 (Version 4)
Quarter: 2015Q2

REPORT INFORMATION
  Report Type: Spontaneous
  Country: IT (occurrence: IT)
  Receive Date: 20150209
  Receipt Date: 20150506
  Transmission Date: 20150821
  Serious: Yes (Other)
  Sender: FDA-Public Use
  Company Number: IT-SA-2015SA013278

PATIENT
  Age: 74 Year
  Sex: Female
  Weight: 86 kg

DRUGS (8)
  1. LASIX [Concomitant]
     Active Substance: FUROSEMIDE
     Route: 048
     Dates: start: 20141001, end: 20150131
  2. CORDARONE [Concomitant]
     Active Substance: AMIODARONE HYDROCHLORIDE
     Route: 048
     Dates: start: 20141001, end: 20150131
  3. COUMADIN [Concomitant]
     Active Substance: WARFARIN SODIUM
     Dates: start: 20141001, end: 20150131
  4. DICLOREUM [Concomitant]
     Active Substance: DICLOFENAC SODIUM
     Route: 048
     Dates: start: 20141001, end: 20150131
  5. CONTROL (PHENYLPROPANOLAMINE) [Concomitant]
     Active Substance: PHENYLPROPANOLAMINE
     Route: 048
  6. CLEXANE [Suspect]
     Active Substance: ENOXAPARIN SODIUM
     Dosage: STRENGTH:4000 IU AXA/0.4 ML SOLUTION INJECTABLE, 6 SYRINGES PREFILLED OF 0.4ML
     Route: 058
     Dates: start: 20150112, end: 20150112
  7. SELOKEN [Concomitant]
     Active Substance: METOPROLOL
     Route: 048
     Dates: start: 20141001, end: 20150131
  8. CAFERGOT [Concomitant]
     Active Substance: CAFFEINE\ERGOTAMINE TARTRATE

REACTIONS (3)
  - Lip oedema [Recovered/Resolved]
  - Feeling hot [Recovered/Resolved]
  - Pruritus generalised [Recovered/Resolved]

NARRATIVE: CASE EVENT DATE: 20150112
